FAERS Safety Report 14912047 (Version 1)
Quarter: 2018Q2

REPORT INFORMATION
  Report Type: Spontaneous
  Country: US (occurrence: US)
  Receive Date: 20180518
  Receipt Date: 20180518
  Transmission Date: 20180711
  Serious: No
  Sender: FDA-Public Use
  Company Number: US-PFIZER INC-2018201327

PATIENT
  Sex: Male

DRUGS (5)
  1. TRINTELLIX [Suspect]
     Active Substance: VORTIOXETINE HYDROBROMIDE
     Indication: DEPRESSION
     Dosage: UNK
  2. REXULTI [Suspect]
     Active Substance: BREXPIPRAZOLE
     Indication: DEPRESSION
     Dosage: 0.5 MG, DAILY
     Dates: start: 201801
  3. REXULTI [Suspect]
     Active Substance: BREXPIPRAZOLE
     Dosage: 2 MG, UNK
     Dates: start: 20180412
  4. ALPRAZOLAM. [Suspect]
     Active Substance: ALPRAZOLAM
     Dosage: 2 MG, 1X/DAY [QD (EVERY 24 HOURS)]
  5. REXULTI [Suspect]
     Active Substance: BREXPIPRAZOLE
     Dosage: 1 MG, UNK

REACTIONS (4)
  - Loss of personal independence in daily activities [Unknown]
  - Staring [Unknown]
  - Personality disorder [Unknown]
  - Logorrhoea [Unknown]

NARRATIVE: CASE EVENT DATE: 20180412
